FAERS Safety Report 9206288 (Version 1)
Quarter: 2013Q2

REPORT INFORMATION
  Report Type: Spontaneous
  Country: US (occurrence: None)
  Receive Date: 20130401
  Receipt Date: 20130401
  Transmission Date: 20140414
  Serious: Yes (Other)
  Sender: FDA-Public Use
  Company Number: ACO_34958_2013

PATIENT
  Age: 68 Year
  Sex: Female
  Weight: 65.8 kg

DRUGS (13)
  1. AMPYRA [Suspect]
     Indication: GAIT DISTURBANCE
     Route: 048
  2. ZOCOR (SIMVASTATIN) TABLET [Concomitant]
  3. FOLIC ACID (FOLIC ACID) TABLET [Concomitant]
  4. GILENYA (FINGOLIMOD HYDROCHLORIDE) CAPSULE [Concomitant]
  5. IBUPROFEN (IBUPROFEN) TABLET [Concomitant]
  6. BACLOFEN (BACLOFEN) TABLET [Concomitant]
  7. LEVOTHYROXINE (LEVOTHYROXINE) TABLET [Concomitant]
  8. BACTRIUM DS (SULFAMETHOXAZOLE, TRIMETHOPRIM) TABLET [Concomitant]
  9. CALCIUM (CALCIUM) TABLET [Concomitant]
  10. VITAMIN B 12 (COBAMAMIDE) TABLET [Concomitant]
  11. AMANTADINE (AMANTADINE) TABLET [Concomitant]
  12. LAILDA (MESALAZINE) TABLET [Concomitant]
  13. ASPIRIN BUFFERED (ACETYLSALICYLIC ACID) TABLET [Concomitant]

REACTIONS (5)
  - Convulsion [None]
  - Cyst [None]
  - Facial spasm [None]
  - Gait disturbance [None]
  - Multiple sclerosis relapse [None]
